FAERS Safety Report 22620231 (Version 1)
Quarter: 2023Q2

REPORT INFORMATION
  Report Type: Spontaneous
  Country: US (occurrence: US)
  Receive Date: 20230620
  Receipt Date: 20230620
  Transmission Date: 20230722
  Serious: No
  Sender: FDA-Public Use
  Company Number: US-PFIZER INC-PV202300098540

PATIENT
  Age: 68 Year
  Sex: Male

DRUGS (2)
  1. INLYTA [Suspect]
     Active Substance: AXITINIB
     Indication: Malignant neoplasm of renal pelvis
     Dosage: UNK, 2X/DAY [2 PO BID]
     Route: 048
  2. INLYTA [Suspect]
     Active Substance: AXITINIB
     Dosage: 5 MG, 2X/DAY (1 PO (PER ORAL) BID)
     Route: 048

REACTIONS (1)
  - Off label use [Unknown]
